FAERS Safety Report 8823060 (Version 1)
Quarter: 2012Q4

REPORT INFORMATION
  Report Type: 
  Country: US (occurrence: US)
  Receive Date: 20121003
  Receipt Date: 20121003
  Transmission Date: 20130627
  Serious: Yes (Other)
  Sender: FDA-Public Use
  Company Number: US-ROCHE-1134964

PATIENT
  Sex: Male

DRUGS (6)
  1. RITUXAN [Suspect]
     Indication: NON-HODGKIN^S LYMPHOMA
     Route: 065
  2. CYCLOPHOSPHAMIDE [Concomitant]
     Dosage: 6 cycles
     Route: 065
     Dates: end: 200001
  3. ADRIAMYCIN [Concomitant]
     Dosage: 6 cycles
     Route: 065
     Dates: end: 200001
  4. ONCOVIN [Concomitant]
     Dosage: 6 cycles
     Route: 065
     Dates: end: 200001
  5. PREDNISONE [Concomitant]
     Dosage: 6 cycles
     Route: 065
     Dates: end: 200001
  6. PROCRIT [Concomitant]
     Dosage: 6 cycles
     Route: 065
     Dates: end: 200001

REACTIONS (5)
  - Anaemia [Unknown]
  - Febrile neutropenia [Unknown]
  - Hypercalcaemia [Unknown]
  - Disease progression [Unknown]
  - Pallor [Unknown]
